FAERS Safety Report 4646723-0 (Version None)
Quarter: 2005Q2

REPORT INFORMATION
  Report Type: 
  Country: None (occurrence: None)
  Receive Date: 20050427
  Receipt Date: 20041203
  Transmission Date: 20051028
  Serious: Yes (Other)
  Sender: FDA-Public Use
  Company Number: GB-GLAXOSMITHKLINE-B0359785A

PATIENT
  Sex: Male

DRUGS (2)
  1. SEROXAT [Suspect]
     Route: 065
     Dates: start: 19981202
  2. DIAZEPAM [Concomitant]
     Indication: ANXIETY
     Route: 065

REACTIONS (6)
  - BLINDNESS [None]
  - FEAR [None]
  - ILL-DEFINED DISORDER [None]
  - NERVOUSNESS [None]
  - SENSORY DISTURBANCE [None]
  - SUICIDE ATTEMPT [None]
